FAERS Safety Report 15951033 (Version 1)
Quarter: 2019Q1

REPORT INFORMATION
  Report Type: Spontaneous
  Country: US (occurrence: US)
  Receive Date: 20190211
  Receipt Date: 20190211
  Transmission Date: 20190417
  Serious: Yes (Other)
  Sender: FDA-Public Use
  Company Number: US-INCYTE CORPORATION-2019IN001006

PATIENT

DRUGS (1)
  1. JAKAFI [Suspect]
     Active Substance: RUXOLITINIB
     Indication: POLYCYTHAEMIA VERA
     Dosage: 10MG, 5 DAYS PER WEEK
     Route: 048
     Dates: start: 20180315

REACTIONS (3)
  - Diabetes mellitus [Unknown]
  - Neuralgia [Unknown]
  - Inappropriate schedule of product administration [Unknown]
